FAERS Safety Report 23626930 (Version 2)
Quarter: 2024Q1

REPORT INFORMATION
  Report Type: Spontaneous
  Country: CA (occurrence: CA)
  Receive Date: 20240313
  Receipt Date: 20240321
  Transmission Date: 20240410
  Serious: Yes (Hospitalization, Other)
  Sender: FDA-Public Use
  Company Number: CA-PFIZER INC-202300359365

PATIENT
  Age: 50 Year
  Sex: Female

DRUGS (5)
  1. RUXIENCE [Suspect]
     Active Substance: RITUXIMAB-PVVR
     Indication: Granulomatosis with polyangiitis
     Dosage: 600 MG, WEEKLY, 4 DOSES
     Route: 042
     Dates: start: 20231017
  2. RUXIENCE [Suspect]
     Active Substance: RITUXIMAB-PVVR
     Dosage: 600 MG, WEEKLY, 4 DOSES (DURATION UNKNOWN AS PREVIOUS INFUSIONS DONE OUTSIDE PROGRAM)
     Route: 042
     Dates: start: 20231106, end: 20231106
  3. RUXIENCE [Suspect]
     Active Substance: RITUXIMAB-PVVR
     Dosage: 600 MG, WEEKLY 4 DOSES (2 WEEKS)
     Route: 042
     Dates: start: 20231120
  4. RUXIENCE [Suspect]
     Active Substance: RITUXIMAB-PVVR
     Dosage: 600 MG, WEEKLY 4 DOSES (2 WEEKS)
     Route: 042
     Dates: start: 20231120
  5. RUXIENCE [Suspect]
     Active Substance: RITUXIMAB-PVVR
     Dosage: 500 MG, DOSE AT MONTH 4 (MAINTENANCE - NOT YET STARTED)
     Route: 042

REACTIONS (7)
  - Respiratory failure [Unknown]
  - Cardiac tamponade [Unknown]
  - Cardiac infection [Unknown]
  - Bronchitis [Unknown]
  - Disease recurrence [Unknown]
  - Off label use [Unknown]
  - Inappropriate schedule of product administration [Unknown]

NARRATIVE: CASE EVENT DATE: 20231120
